FAERS Safety Report 11642235 (Version 2)
Quarter: 2016Q1

REPORT INFORMATION
  Report Type: Spontaneous
  Country: US (occurrence: US)
  Receive Date: 20151019
  Receipt Date: 20160115
  Transmission Date: 20160525
  Serious: Yes (Death, Hospitalization, Other)
  Sender: FDA-Public Use
  Company Number: US-PFIZER INC-2015334625

PATIENT
  Age: 66 Year
  Sex: Male
  Weight: 106.58 kg

DRUGS (1)
  1. TIKOSYN [Suspect]
     Active Substance: DOFETILIDE
     Indication: HEART RATE ABNORMAL
     Dosage: 500 ?G, 2X/DAY (MORNING AND EVENING)
     Route: 048
     Dates: start: 2015

REACTIONS (2)
  - Drug ineffective [Fatal]
  - Arrhythmia [Fatal]
